FAERS Safety Report 4806401-1 (Version None)
Quarter: 2005Q4

REPORT INFORMATION
  Report Type: 
  Country: None (occurrence: None)
  Receive Date: 20051021
  Receipt Date: 20051011
  Transmission Date: 20060501
  Serious: Yes (Other)
  Sender: FDA-Public Use
  Company Number: 2005SE05743

PATIENT
  Age: 78 Year
  Sex: Female

DRUGS (2)
  1. SEROQUEL [Suspect]
     Indication: MAJOR DEPRESSION
     Route: 048
     Dates: start: 20050501
  2. TOLVON [Suspect]
     Indication: MAJOR DEPRESSION
     Route: 048
     Dates: start: 20050501

REACTIONS (2)
  - LEUKOPENIA [None]
  - NEUTROPENIA [None]
